FAERS Safety Report 9511556 (Version 1)
Quarter: 2013Q3

REPORT INFORMATION
  Report Type: Spontaneous
  Country: CH (occurrence: None)
  Receive Date: 20130906
  Receipt Date: 20130906
  Transmission Date: 20140515
  Serious: Yes (Other)
  Sender: FDA-Public Use
  Company Number: 20130458

PATIENT
  Age: 44 Year
  Sex: Female
  Weight: 53 kg

DRUGS (3)
  1. FERINJECT [Suspect]
     Indication: IRON DEFICIENCY ANAEMIA
     Dosage: 1000 MG, 1 IN 1 TOTAL
     Route: 042
     Dates: start: 20130726, end: 20130726
  2. FERINJECT [Suspect]
     Indication: SERUM FERRITIN DECREASED
     Dosage: 1000 MG, 1 IN 1 TOTAL
     Route: 042
     Dates: start: 20130726, end: 20130726
  3. FERINJECT [Suspect]
     Indication: TRANSFERRIN DECREASED
     Dosage: 1000 MG, 1 IN 1 TOTAL
     Route: 042
     Dates: start: 20130726, end: 20130726

REACTIONS (10)
  - Nausea [None]
  - Vomiting [None]
  - Diarrhoea [None]
  - Malaise [None]
  - Headache [None]
  - Back pain [None]
  - Abdominal pain [None]
  - Paraesthesia [None]
  - Pain in extremity [None]
  - Drug intolerance [None]
